FAERS Safety Report 8964233 (Version 1)
Quarter: 2012Q4

REPORT INFORMATION
  Report Type: 
  Country: US (occurrence: US)
  Receive Date: 20121213
  Receipt Date: 20121213
  Transmission Date: 20130627
  Serious: No
  Sender: FDA-Public Use
  Company Number: US-ASTRAZENECA-2012SE90105

PATIENT
  Age: 65 Year
  Sex: Male
  Weight: 90.7 kg

DRUGS (5)
  1. SYMBICORT [Suspect]
     Indication: ILL-DEFINED DISORDER
     Dosage: 160/4.5 TWO PUFFS BID
     Route: 055
     Dates: start: 201111
  2. SYMBICORT [Suspect]
     Indication: ILL-DEFINED DISORDER
     Dosage: 160/4.5 ONE PUFF BID
     Route: 055
  3. ATORVASTATIN [Concomitant]
     Indication: BLOOD CHOLESTEROL INCREASED
     Route: 048
  4. DIOVAN HCT [Concomitant]
     Indication: HYPERTENSION
     Dosage: 320/12.5 MG DAILY
     Route: 048
  5. ASPIRIN [Concomitant]
     Route: 048

REACTIONS (2)
  - Dyspnoea [Not Recovered/Not Resolved]
  - Intentional drug misuse [Unknown]
